FAERS Safety Report 10483580 (Version 1)
Quarter: 2014Q3

REPORT INFORMATION
  Report Type: Spontaneous
  Country: AU (occurrence: None)
  Receive Date: 20140926
  Receipt Date: 20140926
  Transmission Date: 20150326
  Serious: Yes (Other)
  Sender: FDA-Public Use
  Company Number: 2014AU008069

PATIENT
  Sex: Male

DRUGS (2)
  1. ATIVAN [Concomitant]
     Active Substance: LORAZEPAM
  2. ELIGARD [Suspect]
     Active Substance: LEUPROLIDE ACETATE
     Indication: PROSTATE CANCER
     Dosage: 22.5 MG, Q3MONTHS, UNKNOWN
     Dates: start: 20140601

REACTIONS (2)
  - Dyspnoea exertional [None]
  - Fatigue [None]

NARRATIVE: CASE EVENT DATE: 2014
